FAERS Safety Report 6257315-4 (Version None)
Quarter: 2009Q3

REPORT INFORMATION
  Report Type: 
  Country: None (occurrence: None)
  Receive Date: 20090706
  Receipt Date: 20090626
  Transmission Date: 20100115
  Serious: Yes (Other)
  Sender: FDA-Public Use
  Company Number: GB-ROCHE-640639

PATIENT
  Sex: Female

DRUGS (2)
  1. CELLCEPT [Suspect]
     Route: 065
     Dates: start: 20080919, end: 20081007
  2. CELLCEPT [Suspect]
     Route: 065
     Dates: start: 20081008, end: 20090302

REACTIONS (2)
  - APLASIA PURE RED CELL [None]
  - PARVOVIRUS INFECTION [None]
